FAERS Safety Report 18349041 (Version 1)
Quarter: 2020Q4

REPORT INFORMATION
  Report Type: Spontaneous
  Country: US (occurrence: US)
  Receive Date: 20201005
  Receipt Date: 20201005
  Transmission Date: 20210114
  Serious: Yes (Hospitalization)
  Sender: FDA-Public Use
  Company Number: None

PATIENT
  Age: 69 Year
  Sex: Female
  Weight: 63.5 kg

DRUGS (2)
  1. TEMOZOLOMIDE. [Suspect]
     Active Substance: TEMOZOLOMIDE
     Dates: end: 20200915
  2. XELODA [Suspect]
     Active Substance: CAPECITABINE
     Dates: end: 20200916

REACTIONS (4)
  - Pyrexia [None]
  - Neutrophil count decreased [None]
  - Chills [None]
  - Abdominal pain [None]

NARRATIVE: CASE EVENT DATE: 20200915
